FAERS Safety Report 7728877-2 (Version None)
Quarter: 2011Q3

REPORT INFORMATION
  Report Type: 
  Country: None (occurrence: None)
  Receive Date: 20110817
  Receipt Date: 20110513
  Transmission Date: 20111222
  Serious: Yes (Other)
  Sender: FDA-Public Use
  Company Number: 201110456

PATIENT
  Sex: Female

DRUGS (2)
  1. LIORESAL [Suspect]
     Indication: MUSCLE SPASTICITY
     Dosage: MCG, DAILY, INTRATHECAL
     Route: 037
  2. FENTANYL-100 [Concomitant]

REACTIONS (3)
  - LOSS OF CONSCIOUSNESS [None]
  - URINARY INCONTINENCE [None]
  - OVERDOSE [None]
